FAERS Safety Report 8385760-X (Version None)
Quarter: 2012Q2

REPORT INFORMATION
  Report Type: 
  Country: None (occurrence: None)
  Receive Date: 20120523
  Receipt Date: 20120514
  Transmission Date: 20120825
  Serious: Yes (Hospitalization, Other)
  Sender: FDA-Public Use
  Company Number: 2012SP010346

PATIENT
  Age: 62 Year
  Sex: Male
  Weight: 64 kg

DRUGS (11)
  1. CLOBETASOL PROPIONATE [Concomitant]
  2. RIKKUNSHI-TO [Concomitant]
  3. SEDEKOPAN [Concomitant]
  4. TELAVIC (TELAPREVIR) (INVESTIGATIONAL DRUG) [Suspect]
     Indication: HEPATITIS C
     Dosage: 2250 MG;QD;PO ; 1500 MG;QD;PO
     Route: 048
     Dates: start: 20120303, end: 20120316
  5. TELAVIC (TELAPREVIR) (INVESTIGATIONAL DRUG) [Suspect]
     Indication: HEPATITIS C
     Dosage: 2250 MG;QD;PO ; 1500 MG;QD;PO
     Route: 048
     Dates: start: 20120210, end: 20120302
  6. BETAMAC /00314301/ [Concomitant]
  7. PEGINTERFERON ALFA-2B [Suspect]
     Indication: HEPATITIS C
     Dosage: 1.5 MCG/KG;QW;SC
     Route: 058
     Dates: start: 20120210
  8. REBETOL [Suspect]
     Indication: HEPATITIS C
     Dosage: 800 MG;QD;PO ; 400 MG;QD;PO ; 200 MG;QD;PO
     Route: 048
     Dates: start: 20120210, end: 20120309
  9. REBETOL [Suspect]
     Indication: HEPATITIS C
     Dosage: 800 MG;QD;PO ; 400 MG;QD;PO ; 200 MG;QD;PO
     Route: 048
     Dates: start: 20120310, end: 20120316
  10. REBETOL [Suspect]
     Indication: HEPATITIS C
     Dosage: 800 MG;QD;PO ; 400 MG;QD;PO ; 200 MG;QD;PO
     Route: 048
     Dates: start: 20120326, end: 20120327
  11. GASMOTIN [Concomitant]

REACTIONS (8)
  - DEPRESSIVE SYMPTOM [None]
  - DECREASED APPETITE [None]
  - DUODENAL ULCER [None]
  - HYPERURICAEMIA [None]
  - RASH PRURITIC [None]
  - NAUSEA [None]
  - BLOOD CREATININE INCREASED [None]
  - ANAEMIA [None]
